FAERS Safety Report 15249140 (Version 1)
Quarter: 2018Q3

REPORT INFORMATION
  Report Type: Spontaneous
  Country: US (occurrence: US)
  Receive Date: 20180807
  Receipt Date: 20180807
  Transmission Date: 20181010
  Serious: No
  Sender: FDA-Public Use
  Company Number: US-AMGEN-USASP2018106399

PATIENT
  Age: 46 Year
  Sex: Female

DRUGS (10)
  1. KETOROLAC [Concomitant]
     Active Substance: KETOROLAC\KETOROLAC TROMETHAMINE
     Dosage: UNK
  2. SULFASALAZINE. [Concomitant]
     Active Substance: SULFASALAZINE
     Dosage: UNK
  3. ENBREL [Suspect]
     Active Substance: ETANERCEPT
     Indication: PSORIATIC ARTHROPATHY
     Dosage: 50 MG, 2 TIMES/WK
     Route: 058
     Dates: start: 20180703
  4. DICYCLOMINE HCL [Concomitant]
     Active Substance: DICYCLOMINE HYDROCHLORIDE
     Dosage: UNK
  5. VITAMIN D [Concomitant]
     Active Substance: CHOLECALCIFEROL
     Dosage: 1000 UNIT, UNK
  6. LOSARTAN POTASSIUM. [Concomitant]
     Active Substance: LOSARTAN POTASSIUM
     Dosage: UNK
  7. AMITRIPTYLINE HCL [Concomitant]
     Active Substance: AMITRIPTYLINE
     Dosage: UNK
  8. TROMETHAMINE. [Concomitant]
     Active Substance: TROMETHAMINE
     Dosage: UNK
  9. REGLAN [Concomitant]
     Active Substance: METOCLOPRAMIDE HYDROCHLORIDE
     Dosage: UNK
  10. MAGNESIUM [Concomitant]
     Active Substance: MAGNESIUM
     Dosage: 300 MG, UNK

REACTIONS (5)
  - Thirst [Recovered/Resolved]
  - Abdominal pain upper [Recovered/Resolved]
  - Dizziness [Recovered/Resolved]
  - Injection site reaction [Not Recovered/Not Resolved]
  - Off label use [Unknown]

NARRATIVE: CASE EVENT DATE: 2018
